FAERS Safety Report 10440182 (Version 1)
Quarter: 2014Q3

REPORT INFORMATION
  Report Type: Spontaneous
  Country: US (occurrence: US)
  Receive Date: 20140908
  Receipt Date: 20140908
  Transmission Date: 20150326
  Serious: No
  Sender: FDA-Public Use
  Company Number: US-BRISTOL-MYERS SQUIBB COMPANY-19437748

PATIENT
  Age: 14 Year
  Sex: Male
  Weight: 65.98 kg

DRUGS (1)
  1. ABILIFY [Suspect]
     Active Substance: ARIPIPRAZOLE
     Dosage: 2.5MG

REACTIONS (4)
  - Decreased appetite [Unknown]
  - Thirst [Unknown]
  - Weight decreased [Unknown]
  - Wrong technique in drug usage process [Unknown]
